FAERS Safety Report 15620395 (Version 1)
Quarter: 2018Q4

REPORT INFORMATION
  Report Type: Spontaneous
  Country: FR (occurrence: FR)
  Receive Date: 20181115
  Receipt Date: 20181115
  Transmission Date: 20190205
  Serious: Yes (Other)
  Sender: FDA-Public Use
  Company Number: FR-TEVA-2018-FR-974447

PATIENT
  Age: 63 Year
  Sex: Female

DRUGS (6)
  1. CARBOPLATIN. [Suspect]
     Active Substance: CARBOPLATIN
     Dosage: CHEMOTHERAPY WAS RESUMED IN TWO CYCLES
     Route: 065
     Dates: start: 201303, end: 201304
  2. PACLITAXEL. [Suspect]
     Active Substance: PACLITAXEL
     Indication: OVARIAN CANCER
     Dosage: DURING CYCLE 1, 2 AND 6
     Route: 065
     Dates: start: 2012
  3. BEVACIZUMAB. [Suspect]
     Active Substance: BEVACIZUMAB
     Indication: OVARIAN CANCER
     Dosage: DURING CYCLE 3, 4 AND 5
     Route: 065
     Dates: start: 2012
  4. CARBOPLATIN. [Suspect]
     Active Substance: CARBOPLATIN
     Indication: OVARIAN CANCER
     Dosage: TARGET AREA UNDER THE CURVE, AUC 6 ;6 CYCLES
     Route: 065
     Dates: start: 2012
  5. PACLITAXEL. [Suspect]
     Active Substance: PACLITAXEL
     Dosage: CHEMOTHERAPY WAS RESUMED IN 2 CYCLES
     Route: 065
     Dates: start: 201303, end: 201304
  6. BEVACIZUMAB. [Suspect]
     Active Substance: BEVACIZUMAB
     Route: 065
     Dates: start: 201303, end: 201304

REACTIONS (4)
  - Pneumonia [Unknown]
  - Neuropathy peripheral [Unknown]
  - Alopecia [Unknown]
  - Asthenia [Unknown]
